FAERS Safety Report 8816395 (Version 1)
Quarter: 2012Q4

REPORT INFORMATION
  Report Type: Spontaneous
  Country: US (occurrence: None)
  Receive Date: 20120928
  Receipt Date: 20120928
  Transmission Date: 20130627
  Serious: Yes (Hospitalization)
  Sender: FDA-Public Use
  Company Number: None

PATIENT
  Age: 38 Year
  Sex: Female
  Weight: 90 kg

DRUGS (5)
  1. COUMADIN [Suspect]
     Indication: PULMONARY EMBOLISM
     Dosage: recent
     Route: 048
  2. COUMADIN [Suspect]
     Indication: DVT
     Dosage: recent
     Route: 048
  3. ZYRTEC [Concomitant]
  4. SSI [Concomitant]
  5. APAP/OXYCODONE [Concomitant]

REACTIONS (2)
  - Anaemia [None]
  - Anastomotic ulcer haemorrhage [None]
